FAERS Safety Report 9129224 (Version 2)
Quarter: 2013Q2

REPORT INFORMATION
  Report Type: Report from Study
  Country: BR (occurrence: BR)
  Receive Date: 20130228
  Receipt Date: 20130626
  Transmission Date: 20140414
  Serious: Yes (Hospitalization)
  Sender: FDA-Public Use
  Company Number: BR-ROCHE-1195728

PATIENT
  Sex: Male
  Weight: 70 kg

DRUGS (3)
  1. ACTEMRA [Suspect]
     Indication: RHEUMATOID ARTHRITIS
     Route: 042
     Dates: start: 20101110
  2. ACTEMRA [Suspect]
     Route: 065
     Dates: start: 20130618
  3. ARAVA [Concomitant]

REACTIONS (2)
  - Arthropathy [Unknown]
  - Arthropathy [Unknown]
